FAERS Safety Report 6424367-8 (Version None)
Quarter: 2009Q4

REPORT INFORMATION
  Report Type: 
  Country: None (occurrence: None)
  Receive Date: 20091103
  Receipt Date: 20091021
  Transmission Date: 20100525
  Serious: Yes (Death, Hospitalization)
  Sender: FDA-Public Use
  Company Number: GB-ELI_LILLY_AND_COMPANY-GB200910004119

PATIENT
  Sex: Male
  Weight: 79.2 kg

DRUGS (13)
  1. PEMETREXED [Suspect]
     Indication: NEOPLASM MALIGNANT
     Dosage: 1000 MG, EVERY 21 DAYS
     Route: 042
     Dates: start: 20090828, end: 20091009
  2. FOLIC ACID [Concomitant]
     Indication: PROPHYLAXIS
     Dates: start: 20090823
  3. DEXAMETHASONE [Concomitant]
     Indication: PROPHYLAXIS
     Dates: start: 20091008
  4. OMEPRAZOLE [Concomitant]
     Dates: start: 20090101
  5. TRAMADOL HCL [Concomitant]
     Indication: ANALGESIC THERAPY
     Dates: start: 20090912
  6. ATORVASTATIN [Concomitant]
     Indication: DYSLIPIDAEMIA
  7. FELODIPINE [Concomitant]
     Dates: end: 20091016
  8. ALLOPURINOL [Concomitant]
     Indication: GOUT
  9. DOMPERIDONE [Concomitant]
     Indication: ANTIEMETIC SUPPORTIVE CARE
     Dates: start: 20090822
  10. ENALAPRIL [Concomitant]
     Indication: HYPERTENSION
     Dates: start: 20071101, end: 20091016
  11. TRANEXAMIC ACID [Concomitant]
     Indication: PROCOAGULANT THERAPY
     Dates: start: 20090723
  12. LOPERAMIDE [Concomitant]
     Indication: DIARRHOEA
     Dates: start: 20090929
  13. CALCIUM CARBONATE [Concomitant]
     Indication: SUPPLEMENTATION THERAPY
     Dates: start: 20090929

REACTIONS (6)
  - DIARRHOEA [None]
  - HYPOCALCAEMIA [None]
  - HYPOKALAEMIA [None]
  - NAUSEA [None]
  - NEUTROPENIC SEPSIS [None]
  - THROMBOCYTOPENIA [None]
